FAERS Safety Report 13934409 (Version 1)
Quarter: 2017Q3

REPORT INFORMATION
  Report Type: Spontaneous
  Country: GB (occurrence: GB)
  Receive Date: 20170905
  Receipt Date: 20170905
  Transmission Date: 20171127
  Serious: Yes (Other)
  Sender: FDA-Public Use
  Company Number: GB-TORRENT-00015568

PATIENT
  Age: 26 Year
  Sex: Female
  Weight: 102 kg

DRUGS (12)
  1. CODEINE [Concomitant]
     Active Substance: CODEINE
  2. DIAZEPAM. [Concomitant]
     Active Substance: DIAZEPAM
  3. ORAMORPH [Concomitant]
     Active Substance: MORPHINE SULFATE
  4. DICLOFENAC DIETHYLAMINE [Concomitant]
     Active Substance: DICLOFENAC DIETHYLAMINE
  5. NITROFURANTOIN/NITROFURANTOINE [Concomitant]
  6. DULOXETINE HYDROCHLORIDE. [Suspect]
     Active Substance: DULOXETINE HYDROCHLORIDE
  7. ONDANSETRON HYDROCHLORIDE. [Concomitant]
     Active Substance: ONDANSETRON HYDROCHLORIDE
  8. DIHYDROCODEINE PHOSPHATE [Concomitant]
     Active Substance: DIHYDROCODEINE PHOSPHATE
  9. TRAMADOL. [Concomitant]
     Active Substance: TRAMADOL
  10. CYCLIZINE HYDROCHLORIDE [Concomitant]
     Active Substance: CYCLIZINE HYDROCHLORIDE
  11. ESCITALOPRAM/ESCITALOPRAM OXALATE [Concomitant]
  12. AMOXICILLIN/CLAVULANIC ACID [Concomitant]

REACTIONS (3)
  - Dyskinesia [Recovering/Resolving]
  - Pain [Unknown]
  - Oromandibular dystonia [Unknown]

NARRATIVE: CASE EVENT DATE: 20170814
